FAERS Safety Report 20974301 (Version 2)
Quarter: 2022Q2

REPORT INFORMATION
  Report Type: Spontaneous
  Country: US (occurrence: US)
  Receive Date: 20220617
  Receipt Date: 20220625
  Transmission Date: 20220720
  Serious: Yes (Hospitalization, Other)
  Sender: FDA-Public Use
  Company Number: US-Accord-266461

PATIENT
  Age: 57 Year
  Sex: Male

DRUGS (6)
  1. CLOZAPINE [Suspect]
     Active Substance: CLOZAPINE
     Indication: Schizophrenia
     Dosage: 400 MG AT BEDTIME, RE-TITRATED STARTING AT 25 MG
  2. ATORVASTATIN [Concomitant]
     Active Substance: ATORVASTATIN
  3. WARFARIN [Concomitant]
     Active Substance: WARFARIN
     Dosage: DAILY
  4. GLIPIZIDE [Concomitant]
     Active Substance: GLIPIZIDE
  5. INSULIN GLARGINE [Concomitant]
     Active Substance: INSULIN GLARGINE
     Dosage: 70 UNITS DAILY
  6. METFORMIN [Concomitant]
     Active Substance: METFORMIN HYDROCHLORIDE

REACTIONS (6)
  - Hyperhidrosis [Unknown]
  - Loss of consciousness [Unknown]
  - Treatment noncompliance [Unknown]
  - Mental status changes [Unknown]
  - Drug dose titration not performed [Unknown]
  - Unresponsive to stimuli [Unknown]
